FAERS Safety Report 12309479 (Version 1)
Quarter: 2016Q2

REPORT INFORMATION
  Report Type: Spontaneous
  Country: US (occurrence: None)
  Receive Date: 20160426
  Receipt Date: 20160426
  Transmission Date: 20160815
  Serious: Yes (Other)
  Sender: FDA-Public Use
  Company Number: None

PATIENT
  Age: 23 Year
  Sex: Female
  Weight: 79.83 kg

DRUGS (1)
  1. MIRENA [Suspect]
     Active Substance: LEVONORGESTREL
     Dates: start: 20160205, end: 20160422

REACTIONS (10)
  - Fatigue [None]
  - Mental disorder [None]
  - Weight increased [None]
  - Mood swings [None]
  - Haemorrhage [None]
  - Nausea [None]
  - Breast tenderness [None]
  - Anxiety [None]
  - Depression [None]
  - Crying [None]

NARRATIVE: CASE EVENT DATE: 20160422
